FAERS Safety Report 5580227-6 (Version None)
Quarter: 2007Q4

REPORT INFORMATION
  Report Type: 
  Country: None (occurrence: None)
  Receive Date: 20071228
  Receipt Date: 20071217
  Transmission Date: 20080405
  Serious: Yes (Other)
  Sender: FDA-Public Use
  Company Number: GXKR2007GB06268

PATIENT
  Age: 68 Year
  Sex: Male

DRUGS (1)
  1. MIDODRINE HYDROCHLORIDE [Suspect]
     Indication: ORTHOSTATIC HYPOTENSION
     Dosage: 12.5 MG DAILY

REACTIONS (4)
  - DETRUSOR SPHINCTER DYSSYNERGIA [None]
  - DYSURIA [None]
  - HYDRONEPHROSIS [None]
  - MUSCLE SPASMS [None]
